FAERS Safety Report 18014873 (Version 3)
Quarter: 2020Q3

REPORT INFORMATION
  Report Type: Spontaneous
  Country: GB (occurrence: GB)
  Receive Date: 20200713
  Receipt Date: 20200915
  Transmission Date: 20201103
  Serious: Yes (Death, Life-Threatening, Other)
  Sender: FDA-Public Use
  Company Number: GB-PFIZER INC-2020265602

PATIENT
  Age: 17 Year
  Sex: Female

DRUGS (4)
  1. CARBOPROST TROMETAMOL [Suspect]
     Active Substance: CARBOPROST TROMETHAMINE
     Indication: UTERINE CONTRACTIONS ABNORMAL
     Dosage: 250 UG, 6 TIMES
     Route: 030
     Dates: start: 201909, end: 201909
  2. SUGAMMADEX SODIUM [Suspect]
     Active Substance: SUGAMMADEX SODIUM
     Indication: NEUROMUSCULAR BLOCKADE REVERSAL
     Dosage: 200MG
     Route: 040
     Dates: start: 201909, end: 201909
  3. CARBOPROST TROMETAMOL [Suspect]
     Active Substance: CARBOPROST TROMETHAMINE
     Indication: UTERINE HAEMORRHAGE
     Dosage: 500 UG, ONCE
     Route: 015
     Dates: start: 201909, end: 201909
  4. ROCURONIUM BROMIDE. [Suspect]
     Active Substance: ROCURONIUM BROMIDE
     Dosage: UNK
     Dates: start: 201909, end: 201909

REACTIONS (7)
  - Cardiac arrest [Fatal]
  - Apallic syndrome [Fatal]
  - Bronchospasm [Fatal]
  - Brain hypoxia [Fatal]
  - Maternal exposure during delivery [Fatal]
  - Lung perforation [Fatal]
  - Hypoventilation [Fatal]

NARRATIVE: CASE EVENT DATE: 201909
